FAERS Safety Report 26196635 (Version 1)
Quarter: 2025Q4

REPORT INFORMATION
  Report Type: Spontaneous
  Country: US (occurrence: US)
  Receive Date: 20251224
  Receipt Date: 20251224
  Transmission Date: 20260118
  Serious: Yes (Hospitalization, Other)
  Sender: AUTOLUS THERAPEUTICS
  Company Number: US-Autolus Ltd-2190804

PATIENT
  Age: 31 Year
  Sex: Male

DRUGS (2)
  1. AUCATZYL [Suspect]
     Active Substance: OBECABTAGENE AUTOLEUCEL
  2. DECADRON [Concomitant]
     Active Substance: DEXAMETHASONE

REACTIONS (3)
  - Pancytopenia [Unknown]
  - Cerebral haemorrhage [Unknown]
  - Blood product transfusion dependent [Unknown]
